FAERS Safety Report 10036016 (Version 1)
Quarter: 2014Q1

REPORT INFORMATION
  Report Type: Report from Study
  Country: US (occurrence: US)
  Receive Date: 20140325
  Receipt Date: 20140325
  Transmission Date: 20141002
  Serious: Yes (Other)
  Sender: FDA-Public Use
  Company Number: PHEH2014US005755

PATIENT
  Sex: Female

DRUGS (1)
  1. TOBI [Suspect]
     Indication: BRONCHIECTASIS
     Dosage: (300 MG/ 5A ML BID X 7 DAY EVERY MONTH)
     Route: 055
     Dates: start: 201302

REACTIONS (2)
  - Infection [Unknown]
  - Deafness [Unknown]
